FAERS Safety Report 22868137 (Version 5)
Quarter: 2023Q4

REPORT INFORMATION
  Report Type: Spontaneous
  Country: AR (occurrence: AR)
  Receive Date: 20230825
  Receipt Date: 20231103
  Transmission Date: 20240109
  Serious: Yes (Other)
  Sender: FDA-Public Use
  Company Number: AR-MYLANLABS-2023M1088681

PATIENT
  Age: 20 Year
  Sex: Female

DRUGS (9)
  1. CLOZAPINE [Suspect]
     Active Substance: CLOZAPINE
     Indication: Intellectual disability
     Dosage: 550 MILLIGRAM, QD (DAILY)
     Route: 065
     Dates: start: 20190914
  2. CLOZAPINE [Suspect]
     Active Substance: CLOZAPINE
     Indication: Aggression
     Dosage: 600 MILLIGRAM, QD (DAILY)
     Route: 065
     Dates: start: 20190914
  3. CLOZAPINE [Suspect]
     Active Substance: CLOZAPINE
     Indication: Impulse-control disorder
  4. CLOZAPINE [Suspect]
     Active Substance: CLOZAPINE
     Indication: Psychotic disorder
  5. LEVETIRACETAM [Concomitant]
     Active Substance: LEVETIRACETAM
     Indication: Epilepsy
     Dosage: 2000 MILLIGRAM, QD (DAILY)
     Route: 065
  6. LEVETIRACETAM [Concomitant]
     Active Substance: LEVETIRACETAM
     Dosage: 1500 MILLIGRAM, QD
     Route: 065
  7. VALPROATE [Concomitant]
     Active Substance: VALPROIC ACID
     Indication: Epilepsy
     Dosage: 2000 MILLIGRAM, QD (DAILY)
     Route: 065
  8. CLOTHIAPINE [Concomitant]
     Active Substance: CLOTHIAPINE
     Indication: Psychotic disorder
     Dosage: 80 MILLIGRAM, QD (DAILY)
     Route: 065
  9. LEVOMEPROMAZINE [Concomitant]
     Active Substance: LEVOMEPROMAZINE
     Indication: Psychotic disorder
     Dosage: 50 MILLIGRAM, QD (DAILY)
     Route: 065

REACTIONS (3)
  - Neutropenia [Recovered/Resolved]
  - Leukocytosis [Recovered/Resolved]
  - Off label use [Unknown]

NARRATIVE: CASE EVENT DATE: 20190914
